FAERS Safety Report 19509928 (Version 1)
Quarter: 2021Q3

REPORT INFORMATION
  Report Type: Spontaneous
  Country: DE (occurrence: DE)
  Receive Date: 20210708
  Receipt Date: 20210708
  Transmission Date: 20211014
  Serious: Yes (Death, Life-Threatening, Hospitalization)
  Sender: FDA-Public Use
  Company Number: DE-GE HEALTHCARE LIFE SCIENCES-2021CSU002847

PATIENT

DRUGS (2)
  1. ACCUPAQUE [Suspect]
     Active Substance: IOHEXOL
     Indication: COMPUTERISED TOMOGRAM ABDOMEN
     Dosage: 80 ML, SINGLE
     Route: 042
     Dates: start: 20210607, end: 20210607
  2. ACCUPAQUE [Suspect]
     Active Substance: IOHEXOL
     Indication: AORTIC ANEURYSM

REACTIONS (1)
  - Dyspnoea [Fatal]

NARRATIVE: CASE EVENT DATE: 20210607
